FAERS Safety Report 7972764-1 (Version None)
Quarter: 2011Q4

REPORT INFORMATION
  Report Type: 
  Country: None (occurrence: None)
  Receive Date: 20111213
  Receipt Date: 20111209
  Transmission Date: 20120403
  Serious: No
  Sender: FDA-Public Use
  Company Number: US-TEVA-313063USA

PATIENT
  Age: 76 Year
  Sex: Male

DRUGS (1)
  1. AZILECT [Suspect]
     Indication: PARKINSON'S DISEASE
     Dosage: 1 MILLIGRAM;
     Route: 048

REACTIONS (1)
  - VISION BLURRED [None]
